FAERS Safety Report 6996729-1 (Version None)
Quarter: 2010Q3

REPORT INFORMATION
  Report Type: 
  Country: None (occurrence: None)
  Receive Date: 20100918
  Receipt Date: 20090611
  Transmission Date: 20110219
  Serious: Yes (Hospitalization)
  Sender: FDA-Public Use
  Company Number: US-WYE-H09725709

PATIENT
  Sex: Male

DRUGS (6)
  1. EFFEXOR XR [Suspect]
     Indication: DEPRESSION
     Route: 048
     Dates: start: 20050101
  2. TRAZODONE HCL [Concomitant]
     Dosage: UNKNOWN
     Route: 065
  3. PROVIGIL [Concomitant]
     Dosage: UNKNOWN
     Route: 065
  4. ADDERALL 10 [Concomitant]
     Dosage: UNKNOWN
     Route: 065
  5. XANAX [Concomitant]
     Dosage: UNKNOWN
     Route: 065
  6. TYLENOL W/ CODEINE NO. 4 [Concomitant]
     Dosage: UNKNOWN
     Route: 065

REACTIONS (1)
  - LOWER GASTROINTESTINAL HAEMORRHAGE [None]
